FAERS Safety Report 4447988-0 (Version None)
Quarter: 2004Q3

REPORT INFORMATION
  Report Type: 
  Country: None (occurrence: None)
  Receive Date: 20040913
  Receipt Date: 20040823
  Transmission Date: 20050211
  Serious: Yes (Hospitalization)
  Sender: FDA-Public Use
  Company Number: JP-MERCK-0408USA02192

PATIENT
  Age: 65 Year
  Sex: Male

DRUGS (7)
  1. MUCOSOLVAN [Concomitant]
     Route: 048
     Dates: start: 20030101
  2. PULMICORT [Concomitant]
     Route: 055
     Dates: start: 20030101
  3. MUCODYNE [Concomitant]
     Route: 048
     Dates: start: 20030101
  4. INTEBAN [Concomitant]
     Route: 065
  5. SINGULAIR [Suspect]
     Indication: ASTHMA
     Route: 048
     Dates: start: 20030101, end: 20040810
  6. THEO-DUR [Concomitant]
     Route: 048
     Dates: start: 20030101
  7. HOKUNALIN [Concomitant]
     Route: 061
     Dates: start: 20030101

REACTIONS (6)
  - ASTHMA [None]
  - BACTERIA URINE [None]
  - CONDITION AGGRAVATED [None]
  - EOSINOPHILIC CYSTITIS [None]
  - PROSTATIC SPECIFIC ANTIGEN INCREASED [None]
  - PROSTATITIS [None]
